FAERS Safety Report 6769710-5 (Version None)
Quarter: 2010Q2

REPORT INFORMATION
  Report Type: 
  Country: None (occurrence: None)
  Receive Date: 20100615
  Receipt Date: 20100601
  Transmission Date: 20101027
  Serious: Yes (Hospitalization)
  Sender: FDA-Public Use
  Company Number: SE-JNJFOC-20100603973

PATIENT
  Age: 19 Year
  Sex: Female

DRUGS (1)
  1. TRAMADOL HCL [Suspect]
     Indication: DRUG USE FOR UNKNOWN INDICATION
     Route: 048

REACTIONS (7)
  - APATHY [None]
  - CONVULSION [None]
  - FATIGUE [None]
  - MIOSIS [None]
  - NAUSEA [None]
  - OVERDOSE [None]
  - VOMITING [None]
